APPROVED DRUG PRODUCT: MIFEPRISTONE
Active Ingredient: MIFEPRISTONE
Strength: 200MG
Dosage Form/Route: TABLET;ORAL
Application: A216616 | Product #001 | TE Code: AB
Applicant: EVITA SOLUTIONS LLC
Approved: Sep 30, 2025 | RLD: No | RS: No | Type: RX